FAERS Safety Report 5826413-9 (Version None)
Quarter: 2008Q3

REPORT INFORMATION
  Report Type: 
  Country: None (occurrence: None)
  Receive Date: 20080729
  Receipt Date: 20080703
  Transmission Date: 20090109
  Serious: No
  Sender: FDA-Public Use
  Company Number: US-BOEHRINGER INGELHEIM GMBH, GERMANY-2008-BP-10445BP

PATIENT
  Age: 82 Year
  Sex: Female

DRUGS (2)
  1. ZANTAC [Suspect]
     Indication: DECREASED APPETITE
     Route: 048
     Dates: start: 20080601
  2. ZANTAC [Suspect]
     Indication: DRY MOUTH

REACTIONS (1)
  - DRUG INEFFECTIVE [None]
